FAERS Safety Report 25675973 (Version 1)
Quarter: 2025Q3

REPORT INFORMATION
  Report Type: Other
  Country: CA (occurrence: CA)
  Receive Date: 20250813
  Receipt Date: 20250813
  Transmission Date: 20251020
  Serious: Yes (Hospitalization)
  Sender: APOTEX
  Company Number: CA-APOTEX-2025AP011525

PATIENT
  Age: 38 Year
  Sex: Male

DRUGS (2)
  1. NILOTINIB HYDROCHLORIDE ANHYDROUS [Suspect]
     Active Substance: NILOTINIB HYDROCHLORIDE ANHYDROUS
     Indication: Philadelphia positive chronic myeloid leukaemia
     Route: 048
  2. NILOTINIB HYDROCHLORIDE ANHYDROUS [Suspect]
     Active Substance: NILOTINIB HYDROCHLORIDE ANHYDROUS
     Indication: Philadelphia positive chronic myeloid leukaemia
     Route: 048

REACTIONS (1)
  - Illness [Unknown]

NARRATIVE: CASE EVENT DATE: 20250701
